FAERS Safety Report 19103913 (Version 1)
Quarter: 2021Q2

REPORT INFORMATION
  Report Type: Spontaneous
  Country: BR (occurrence: BR)
  Receive Date: 20210407
  Receipt Date: 20210407
  Transmission Date: 20210717
  Serious: Yes (Other)
  Sender: FDA-Public Use
  Company Number: BR-NOVOPROD-799563

PATIENT
  Age: 49 Year
  Sex: Female
  Weight: 69 kg

DRUGS (1)
  1. LIRAGLUTIDE [Suspect]
     Active Substance: LIRAGLUTIDE
     Indication: OBESITY
     Dosage: 2.4 MG
     Route: 065
     Dates: start: 2017

REACTIONS (1)
  - Breast cancer stage I [Unknown]

NARRATIVE: CASE EVENT DATE: 201901
